FAERS Safety Report 7700203-4 (Version None)
Quarter: 2011Q3

REPORT INFORMATION
  Report Type: 
  Country: None (occurrence: None)
  Receive Date: 20110822
  Receipt Date: 20110808
  Transmission Date: 20111222
  Serious: Yes (Death)
  Sender: FDA-Public Use
  Company Number: FR-MYLANLABS-2011S1016343

PATIENT
  Age: 72 Year
  Sex: Male
  Weight: 63 kg

DRUGS (25)
  1. DEXAMETHASONE [Suspect]
     Dates: start: 20110106, end: 20110107
  2. TRABECTEDIN [Suspect]
     Dates: start: 20110414
  3. OXYCONTIN [Suspect]
     Dates: start: 20101201
  4. AMOXICILLIN TRIHYDRATE [Suspect]
     Dates: start: 20101201
  5. GAVISCON [Concomitant]
  6. DEXAMETHASONE [Suspect]
     Dates: start: 20110127, end: 20110128
  7. ONDANSETRON [Suspect]
     Dates: start: 20110127, end: 20110128
  8. VOGALENE [Concomitant]
  9. DEXAMETHASONE [Suspect]
     Indication: PREMEDICATION
     Dates: start: 20101216, end: 20101217
  10. TRABECTEDIN [Suspect]
     Dates: start: 20110127, end: 20110128
  11. ONDANSETRON [Suspect]
     Dates: start: 20110106, end: 20110107
  12. ALFUZOSIN HCL [Concomitant]
  13. LIDOCAINE [Concomitant]
  14. OXYCODONE HCL [Concomitant]
  15. DEXAMETHASONE [Suspect]
     Dates: start: 20110414
  16. TRABECTEDIN [Suspect]
     Dates: start: 20101216, end: 20111217
  17. TRABECTEDIN [Suspect]
     Dates: start: 20110106, end: 20110107
  18. APREPITANT [Suspect]
     Dates: start: 20101201, end: 20110101
  19. TADENAN [Concomitant]
  20. NEXIUM [Concomitant]
  21. DEXAMETHASONE [Suspect]
     Dates: start: 20110303
  22. TRABECTEDIN [Suspect]
     Dates: start: 20110303
  23. ONDANSETRON [Suspect]
     Indication: VOMITING
     Dates: start: 20101216, end: 20111217
  24. ACETAMINOPHEN [Concomitant]
  25. LYRICA [Concomitant]

REACTIONS (2)
  - CHOLESTASIS [None]
  - CYTOLYTIC HEPATITIS [None]
